FAERS Safety Report 8431901-5 (Version None)
Quarter: 2012Q2

REPORT INFORMATION
  Report Type: 
  Country: None (occurrence: None)
  Receive Date: 20120607
  Receipt Date: 20120607
  Transmission Date: 20120825
  Serious: Yes (Life-Threatening, Hospitalization, Disabling, Other)
  Sender: FDA-Public Use
  Company Number: None

PATIENT
  Age: 60 Year
  Sex: Male
  Weight: 90.7194 kg

DRUGS (1)
  1. LYRICA [Suspect]
     Indication: FIBROMYALGIA

REACTIONS (4)
  - CONFUSIONAL STATE [None]
  - LOSS OF EMPLOYMENT [None]
  - LOSS OF CONSCIOUSNESS [None]
  - IMPAIRED WORK ABILITY [None]
